FAERS Safety Report 18777382 (Version 1)
Quarter: 2021Q1

REPORT INFORMATION
  Report Type: Other
  Country: US (occurrence: US)
  Receive Date: 20210122
  Receipt Date: 20210122
  Transmission Date: 20210419
  Serious: No
  Sender: FDA-Public Use
  Company Number: US-CHIESI USA INC.-2020STPI000424

PATIENT
  Sex: Female

DRUGS (20)
  1. AMITRIPTYLINE [Concomitant]
     Active Substance: AMITRIPTYLINE
  2. FLUCONAZOLE. [Concomitant]
     Active Substance: FLUCONAZOLE
  3. PREDNISONE. [Concomitant]
     Active Substance: PREDNISONE
  4. BYSTOLIC [Concomitant]
     Active Substance: NEBIVOLOL HYDROCHLORIDE
  5. CARBIDOPA AND LEVODOPA [Concomitant]
     Active Substance: CARBIDOPA\LEVODOPA
  6. MELOXICAM. [Concomitant]
     Active Substance: MELOXICAM
  7. Q?PAP [Concomitant]
     Active Substance: ACETAMINOPHEN
  8. TRIMETHOPRIM. [Concomitant]
     Active Substance: TRIMETHOPRIM
  9. CORLANOR [Concomitant]
     Active Substance: IVABRADINE HYDROCHLORIDE
  10. KLONOPIN [Concomitant]
     Active Substance: CLONAZEPAM
  11. NEXIUM [Concomitant]
     Active Substance: ESOMEPRAZOLE MAGNESIUM
  12. NYSTATIN. [Concomitant]
     Active Substance: NYSTATIN
  13. ALPHAGAN P SOL [Concomitant]
  14. CARBIDOPA. [Concomitant]
     Active Substance: CARBIDOPA
  15. REVCOVI [Suspect]
     Active Substance: ELAPEGADEMASE-LVLR
     Indication: COMBINED IMMUNODEFICIENCY
     Dosage: 10 ML, BIW
     Route: 030
     Dates: start: 20191127
  16. MONTELUKAST [Concomitant]
     Active Substance: MONTELUKAST SODIUM
  17. BACLOFEN. [Concomitant]
     Active Substance: BACLOFEN
  18. BUDESONIDE. [Concomitant]
     Active Substance: BUDESONIDE
  19. FLUOXETINE [Concomitant]
     Active Substance: FLUOXETINE HYDROCHLORIDE
  20. ISOSORB MONO [Concomitant]
     Active Substance: ISOSORBIDE MONONITRATE

REACTIONS (1)
  - Purpura [Unknown]
